FAERS Safety Report 23344529 (Version 2)
Quarter: 2024Q1

REPORT INFORMATION
  Report Type: Report from Study
  Country: US (occurrence: US)
  Receive Date: 20231228
  Receipt Date: 20240102
  Transmission Date: 20240410
  Serious: Yes (Other)
  Sender: FDA-Public Use
  Company Number: US-ABBVIE-5561786

PATIENT
  Age: 72 Year
  Sex: Female
  Weight: 52.163 kg

DRUGS (2)
  1. RINVOQ [Suspect]
     Active Substance: UPADACITINIB
     Indication: Rheumatoid arthritis
     Dosage: FORM STRENGTH: 15 MILLIGRAM
     Route: 048
  2. FORTEO [Suspect]
     Active Substance: TERIPARATIDE
     Indication: Bone disorder
     Dosage: SIX SHOTS, ONE SHOT PER DAY
     Route: 065

REACTIONS (6)
  - Nephrolithiasis [Recovered/Resolved]
  - Haemorrhage urinary tract [Recovered/Resolved]
  - Renal disorder [Recovered/Resolved]
  - Hydronephrosis [Recovered/Resolved]
  - Chromaturia [Unknown]
  - Blood urine present [Recovered/Resolved]

NARRATIVE: CASE EVENT DATE: 20231001
